FAERS Safety Report 8445331-3 (Version None)
Quarter: 2012Q2

REPORT INFORMATION
  Report Type: 
  Country: None (occurrence: None)
  Receive Date: 20120612
  Receipt Date: 20120612
  Transmission Date: 20120825
  Serious: Yes (Other)
  Sender: FDA-Public Use
  Company Number: None

PATIENT
  Age: 33 Year
  Sex: Female

DRUGS (2)
  1. VENLAFAXINE [Suspect]
     Indication: BIPOLAR DISORDER
     Dosage: 150MG ONCE A DAY PO
     Route: 048
     Dates: start: 20120131, end: 20120611
  2. ALPRAZOLAM [Concomitant]

REACTIONS (2)
  - ABNORMAL BEHAVIOUR [None]
  - TOBACCO USER [None]
